FAERS Safety Report 6762370-9 (Version None)
Quarter: 2010Q2

REPORT INFORMATION
  Report Type: 
  Country: None (occurrence: None)
  Receive Date: 20100609
  Receipt Date: 20100531
  Transmission Date: 20101027
  Serious: Yes (Death)
  Sender: FDA-Public Use
  Company Number: SE-ROCHE-700839

PATIENT
  Age: 71 Year
  Sex: Female

DRUGS (9)
  1. XELODA [Suspect]
     Indication: BREAST CANCER
     Dosage: DOSE: 900MG/M2
     Route: 048
     Dates: start: 20100323, end: 20100406
  2. TAXOTERE [Suspect]
     Indication: BREAST CANCER
     Dosage: INDICATION: BREASCANCER, DRUG: TAXOTERE 100MG
     Route: 065
     Dates: start: 20100323
  3. EPIRUBICIN [Concomitant]
     Indication: BREAST CANCER
  4. CYCLOPHOSPHAMIDE [Concomitant]
     Indication: BREAST CANCER
  5. KALEORID [Concomitant]
     Dosage: DRUG: KALEROID 750 MG, FREQUENCY: 1 X 1
  6. SALURES [Concomitant]
     Dosage: DRUG: SALURES 2,5MG, FREQUENCY 1-2 X 1
  7. ATENOLOL [Concomitant]
     Dosage: DRUG: ATENOLOL 100MG, FREQUENCY: 1 X1
  8. FLUOXETINE [Concomitant]
     Dosage: DRUG: FLUOXETINE 20MG, FREQUENCY: 1 X 1
  9. MIANSERIN [Concomitant]
     Dosage: DRUG: MIANSERIN 10MG, FREQUENCY: 1 X 1

REACTIONS (12)
  - BLOOD CREATININE INCREASED [None]
  - C-REACTIVE PROTEIN INCREASED [None]
  - DIARRHOEA [None]
  - DYSPNOEA [None]
  - FATIGUE [None]
  - HYPONATRAEMIA [None]
  - HYPOTENSION [None]
  - MULTI-ORGAN FAILURE [None]
  - NEUTROPENIA [None]
  - PYREXIA [None]
  - SEPSIS [None]
  - VERTIGO [None]
